FAERS Safety Report 7608276-4 (Version None)
Quarter: 2011Q3

REPORT INFORMATION
  Report Type: 
  Country: None (occurrence: None)
  Receive Date: 20110714
  Receipt Date: 20110713
  Transmission Date: 20111222
  Serious: Yes (Hospitalization, Other)
  Sender: FDA-Public Use
  Company Number: JP-PFIZER INC-2011158744

PATIENT
  Age: 54 Year
  Sex: Male

DRUGS (6)
  1. LENDORMIN [Concomitant]
     Dosage: UNK
     Route: 048
  2. ABILIT [Concomitant]
     Dosage: UNK
     Route: 048
  3. ZOLOFT [Suspect]
     Indication: DEPRESSION
     Dosage: 25 MG, A DAY
     Route: 048
     Dates: start: 20101011
  4. ZOLOFT [Suspect]
     Dosage: 50 MG, A DAY
     Route: 048
     Dates: end: 20110612
  5. U-PAN [Concomitant]
     Dosage: UNK
     Route: 048
  6. RAMOSETRON HYDROCHLORIDE [Concomitant]
     Dosage: UNK
     Route: 048

REACTIONS (1)
  - HEPATITIS ACUTE [None]
